FAERS Safety Report 9424654 (Version 2)
Quarter: 2013Q3

REPORT INFORMATION
  Report Type: Report from Study
  Country: JP (occurrence: JP)
  Receive Date: 20130729
  Receipt Date: 20130808
  Transmission Date: 20140515
  Serious: Yes (Death)
  Sender: FDA-Public Use
  Company Number: JP-SANOFI-AVENTIS-2012SA089289

PATIENT
  Age: 83 Year
  Sex: Male
  Weight: 57.1 kg

DRUGS (11)
  1. LANTUS SOLOSTAR [Suspect]
     Indication: TYPE 2 DIABETES MELLITUS
     Dosage: DOSE:6 UNIT(S)
     Route: 058
     Dates: start: 20120706, end: 20121121
  2. APIDRA SOLOSTAR [Suspect]
     Indication: TYPE 2 DIABETES MELLITUS
     Dosage: DOSE:6 UNIT(S)
     Route: 058
     Dates: start: 20120706, end: 20121003
  3. APIDRA SOLOSTAR [Suspect]
     Indication: TYPE 2 DIABETES MELLITUS
     Dosage: DOSE:4 UNIT(S)
     Route: 058
     Dates: start: 20121004, end: 20121121
  4. SOLOSTAR [Concomitant]
     Indication: DEVICE THERAPY
     Dates: start: 20120706, end: 20121121
  5. SOLOSTAR [Concomitant]
     Indication: DEVICE THERAPY
     Dates: start: 20120706, end: 20121121
  6. INSULIN ASPART [Concomitant]
     Indication: TYPE 2 DIABETES MELLITUS
     Dosage: DOSE: 12 U BEFORE BREAKFAST AND 8 U BEFORE DINNER
     Route: 058
     Dates: start: 20120606, end: 20120706
  7. SITAGLIPTIN PHOSPHATE [Concomitant]
     Indication: TYPE 2 DIABETES MELLITUS
     Route: 048
     Dates: start: 20111112, end: 20121121
  8. HYDROCHLOROTHIAZIDE/VALSARTAN [Concomitant]
     Route: 048
     Dates: start: 20100519, end: 20121121
  9. LOCHOL [Concomitant]
     Route: 048
     Dates: start: 20060206, end: 20121121
  10. AMLODIPINE BESILATE [Concomitant]
     Route: 048
     Dates: start: 20090323, end: 20121121
  11. MAINTATE [Concomitant]
     Route: 048
     Dates: start: 20090424, end: 20121121

REACTIONS (2)
  - Hypoglycaemia [Fatal]
  - Sudden death [Fatal]
